FAERS Safety Report 5190730-9 (Version None)
Quarter: 2006Q4

REPORT INFORMATION
  Report Type: 
  Country: None (occurrence: None)
  Receive Date: 20061222
  Receipt Date: 20061215
  Transmission Date: 20070319
  Serious: Yes (Other)
  Sender: FDA-Public Use
  Company Number: TR-ROCHE-475377

PATIENT
  Age: 5 Month
  Sex: Male

DRUGS (1)
  1. CEFTRIAXONE [Suspect]
     Indication: EXTERNAL EAR CELLULITIS
     Route: 065

REACTIONS (1)
  - LEUKOCYTOCLASTIC VASCULITIS [None]
